FAERS Safety Report 17775134 (Version 4)
Quarter: 2020Q2

REPORT INFORMATION
  Report Type: Spontaneous
  Country: LV (occurrence: LV)
  Receive Date: 20200513
  Receipt Date: 20200605
  Transmission Date: 20200714
  Serious: Yes (Hospitalization, Other)
  Sender: FDA-Public Use
  Company Number: LV-ROCHE-2599088

PATIENT
  Age: 12 Year
  Sex: Female
  Weight: 21 kg

DRUGS (8)
  1. PREDNISOLONUM [Concomitant]
     Active Substance: PREDNISOLONE
     Route: 065
  2. RIVAROXABAN [Concomitant]
     Active Substance: RIVAROXABAN
  3. RITUXIMAB. [Suspect]
     Active Substance: RITUXIMAB
     Indication: PRODUCT USED FOR UNKNOWN INDICATION
     Dosage: ONCE WEEKLY FOR 4 WEEKS
     Route: 065
     Dates: start: 20200326
  4. ROACTEMRA [Suspect]
     Active Substance: TOCILIZUMAB
     Indication: PRODUCT USED FOR UNKNOWN INDICATION
     Route: 042
     Dates: start: 20190321, end: 202003
  5. AZITROMICIN [Concomitant]
     Active Substance: AZITHROMYCIN
  6. BISEPTOL [Concomitant]
     Active Substance: SULFAMETHOXAZOLE\TRIMETHOPRIM
  7. CELLCEPT [Suspect]
     Active Substance: MYCOPHENOLATE MOFETIL\MYCOPHENOLATE MOFETIL HYDROCHLORIDE
     Indication: POLYARTHRITIS
     Dosage: 2 X DAY FOR ONE WEEK
     Route: 048
     Dates: start: 202003, end: 202003
  8. CICLOSPORINUM [Concomitant]
     Active Substance: CYCLOSPORINE

REACTIONS (3)
  - Condition aggravated [Not Recovered/Not Resolved]
  - Pneumonitis [Not Recovered/Not Resolved]
  - Pulmonary hypertension [Not Recovered/Not Resolved]

NARRATIVE: CASE EVENT DATE: 202003
